FAERS Safety Report 18932204 (Version 2)
Quarter: 2021Q1

REPORT INFORMATION
  Report Type: Spontaneous
  Country: US (occurrence: US)
  Receive Date: 20210223
  Receipt Date: 20210315
  Transmission Date: 20210420
  Serious: Yes (Other)
  Sender: FDA-Public Use
  Company Number: US-SUN PHARMACEUTICAL INDUSTRIES LTD-2021R1-282092

PATIENT
  Sex: Male

DRUGS (3)
  1. RANOLAZINE. [Suspect]
     Active Substance: RANOLAZINE
     Indication: MYALGIA
     Dosage: 500 MILLIGRAM
     Route: 065
     Dates: start: 201912, end: 20201103
  2. RANOLAZINE. [Suspect]
     Active Substance: RANOLAZINE
     Indication: COUGH
     Dosage: 1000 MILLIGRAM
     Route: 065
  3. RANOLAZINE. [Suspect]
     Active Substance: RANOLAZINE
     Indication: MYOCARDIAL INFARCTION

REACTIONS (3)
  - Cerebrovascular accident [Unknown]
  - Hypertension [Unknown]
  - Product prescribing error [Unknown]
